FAERS Safety Report 7391857-3 (Version None)
Quarter: 2011Q2

REPORT INFORMATION
  Report Type: 
  Country: None (occurrence: None)
  Receive Date: 20110404
  Receipt Date: 20110330
  Transmission Date: 20111010
  Serious: Yes (Other)
  Sender: FDA-Public Use
  Company Number: CZ-ROCHE-768536

PATIENT
  Sex: Male

DRUGS (1)
  1. BEVACIZUMAB [Suspect]
     Dosage: DOSE AND FREQUENCY: NOT REPORTED
     Route: 042

REACTIONS (1)
  - RENAL IMPAIRMENT [None]
